FAERS Safety Report 10410586 (Version 1)
Quarter: 2014Q3

REPORT INFORMATION
  Report Type: Spontaneous
  Country: US (occurrence: US)
  Receive Date: 20140826
  Receipt Date: 20140826
  Transmission Date: 20150326
  Serious: No
  Sender: FDA-Public Use
  Company Number: US-BRISTOL-MYERS SQUIBB COMPANY-20633236

PATIENT
  Sex: Male

DRUGS (1)
  1. KENALOG-40 [Suspect]
     Active Substance: TRIAMCINOLONE ACETONIDE
     Indication: RASH
     Dosage: 1DF = 1 DEPOT
     Route: 030
     Dates: start: 2014, end: 2014

REACTIONS (3)
  - Erectile dysfunction [Unknown]
  - Hyperhidrosis [Unknown]
  - Insomnia [Unknown]
